FAERS Safety Report 16792537 (Version 1)
Quarter: 2019Q3

REPORT INFORMATION
  Report Type: Spontaneous
  Country: US (occurrence: US)
  Receive Date: 20190910
  Receipt Date: 20190910
  Transmission Date: 20191005
  Serious: No
  Sender: FDA-Public Use
  Company Number: US-JNJFOC-20190901468

PATIENT

DRUGS (1)
  1. SPRAVATO [Suspect]
     Active Substance: ESKETAMINE
     Indication: PRODUCT USED FOR UNKNOWN INDICATION

REACTIONS (6)
  - Fatigue [Unknown]
  - Blood pressure increased [Unknown]
  - Headache [Unknown]
  - Nausea [Unknown]
  - Anxiety [Unknown]
  - Somnolence [Unknown]

NARRATIVE: CASE EVENT DATE: 20190830
